FAERS Safety Report 4264860-X (Version None)
Quarter: 2004Q1

REPORT INFORMATION
  Report Type: 
  Country: None (occurrence: None)
  Receive Date: 20040105
  Receipt Date: 20031219
  Transmission Date: 20041129
  Serious: Yes (Other)
  Sender: FDA-Public Use
  Company Number: 2003EU006920

PATIENT
  Age: 49 Year
  Sex: Male

DRUGS (4)
  1. PROTOPIC [Suspect]
     Indication: DERMATITIS ATOPIC
     Dosage: SEE IMAGE
     Route: 061
     Dates: start: 20030527, end: 20031031
  2. PROTOPIC [Suspect]
     Indication: DERMATITIS ATOPIC
     Dosage: SEE IMAGE
     Route: 061
     Dates: start: 20030929, end: 20031031
  3. AERIUS (DESLORATADINE) [Concomitant]
  4. DIPROSONE [Concomitant]

REACTIONS (2)
  - METASTASES TO LYMPH NODES [None]
  - OESOPHAGEAL CARCINOMA [None]
